FAERS Safety Report 19737397 (Version 1)
Quarter: 2021Q3

REPORT INFORMATION
  Report Type: Spontaneous
  Country: US (occurrence: US)
  Receive Date: 20210823
  Receipt Date: 20210823
  Transmission Date: 20211014
  Serious: No
  Sender: FDA-Public Use
  Company Number: US-BIOMARINAP-US-2021-138202

PATIENT
  Sex: Male
  Weight: 8.16 kg

DRUGS (1)
  1. KUVAN [Suspect]
     Active Substance: SAPROPTERIN DIHYDROCHLORIDE
     Indication: PHENYLKETONURIA
     Dosage: 100 MILLIGRAM, QD
     Route: 048

REACTIONS (4)
  - Constipation [Unknown]
  - Faeces hard [Unknown]
  - Rhinorrhoea [Unknown]
  - Nasal congestion [Unknown]
